FAERS Safety Report 9422679 (Version 1)
Quarter: 2013Q3

REPORT INFORMATION
  Report Type: Spontaneous
  Country: US (occurrence: None)
  Receive Date: 20130724
  Receipt Date: 20130724
  Transmission Date: 20140515
  Serious: Yes (Other)
  Sender: FDA-Public Use
  Company Number: 2013AP006775

PATIENT
  Age: 21 Year
  Sex: Male

DRUGS (8)
  1. RISPERIDONE [Suspect]
     Indication: AUTISM
     Dates: start: 2002, end: 2009
  2. KETOCONAZOLE [Suspect]
  3. SERTRALINE [Concomitant]
  4. CLONAZEPAM [Concomitant]
  5. CLONIDINE [Concomitant]
  6. VALPROATE SODIUM [Concomitant]
  7. CARBAMAZEPINE [Concomitant]
  8. PAXOXETINE [Concomitant]

REACTIONS (1)
  - Priapism [None]
